FAERS Safety Report 13227230 (Version 1)
Quarter: 2017Q1

REPORT INFORMATION
  Report Type: Spontaneous
  Country: US (occurrence: US)
  Receive Date: 20170213
  Receipt Date: 20170213
  Transmission Date: 20170428
  Serious: Yes (Hospitalization)
  Sender: FDA-Public Use
  Company Number: US-VERTEX PHARMACEUTICALS-2017-000776

PATIENT
  Age: 21 Year
  Sex: Male

DRUGS (5)
  1. ZENPEP [Concomitant]
     Active Substance: PANCRELIPASE AMYLASE\PANCRELIPASE LIPASE\PANCRELIPASE PROTEASE
  2. ALBUTEROL. [Concomitant]
     Active Substance: ALBUTEROL
  3. PENICILLIN VK [Concomitant]
     Active Substance: PENICILLIN V POTASSIUM
  4. ORKAMBI [Suspect]
     Active Substance: IVACAFTOR\LUMACAFTOR
     Indication: CYSTIC FIBROSIS
     Dosage: 200/125 MG, BID
     Route: 048
     Dates: start: 20150930
  5. AQUADEKS [Concomitant]
     Active Substance: MINERALS\VITAMINS

REACTIONS (1)
  - Cystic fibrosis [Recovering/Resolving]

NARRATIVE: CASE EVENT DATE: 201612
